FAERS Safety Report 4519319-9 (Version None)
Quarter: 2004Q4

REPORT INFORMATION
  Report Type: 
  Country: None (occurrence: None)
  Receive Date: 20041206
  Receipt Date: 20041124
  Transmission Date: 20050328
  Serious: Yes (Death)
  Sender: FDA-Public Use
  Company Number: GB-GLAXOSMITHKLINE-B0358604A

PATIENT
  Sex: Male

DRUGS (1)
  1. SERETIDE [Suspect]
     Dosage: 1PUFF TWICE PER DAY

REACTIONS (2)
  - DEATH [None]
  - HAEMATEMESIS [None]
